FAERS Safety Report 8273311-X (Version None)
Quarter: 2012Q2

REPORT INFORMATION
  Report Type: 
  Country: None (occurrence: None)
  Receive Date: 20120411
  Receipt Date: 20120409
  Transmission Date: 20120825
  Serious: Yes (Hospitalization)
  Sender: FDA-Public Use
  Company Number: DE-PFIZER INC-2012069129

PATIENT
  Age: 42 Year
  Sex: Female
  Weight: 65 kg

DRUGS (13)
  1. ESTRADIOL /LEVONORGESTREL [Concomitant]
     Indication: BLOOD LUTEINISING HORMONE DECREASED
     Dosage: 2 MG, 1X/DAY
     Dates: start: 20081113
  2. LEVOTHYROXINE [Concomitant]
     Indication: BLOOD THYROID STIMULATING HORMONE DECREASED
     Dosage: 75 UG, 1X/DAY
     Dates: start: 20060601
  3. LEVOTHYROXINE [Concomitant]
     Dosage: 100 UG, 1X/DAY
     Dates: start: 20080417
  4. CITALOPRAM [Concomitant]
     Dosage: 10 MG, 1X/DAY
     Dates: start: 20060703
  5. ESTRADIOL [Concomitant]
     Indication: BLOOD LUTEINISING HORMONE DECREASED
     Dosage: 0.05 MG, DAILY
     Dates: start: 20060601
  6. DULCOLAX [Concomitant]
     Indication: WEIGHT DECREASED
  7. VENLAFAXINE [Concomitant]
     Dosage: 75 MG, 1X/DAY
     Dates: start: 20091115
  8. HYDROCORTISONE [Concomitant]
     Indication: BLOOD CORTICOTROPHIN DECREASED
     Dosage: 10 UG, 1X/DAY
     Dates: start: 20060724
  9. ESTRADIOL /LEVONORGESTREL [Concomitant]
     Indication: BLOOD FOLLICLE STIMULATING HORMONE DECREASED
  10. LEVOTHYROXINE SODIUM [Concomitant]
     Indication: BLOOD THYROID STIMULATING HORMONE DECREASED
     Dosage: 112 UG, 1X/DAY
     Dates: start: 20090226
  11. ESTRADIOL [Concomitant]
     Indication: BLOOD FOLLICLE STIMULATING HORMONE DECREASED
  12. SOMATROPIN [Suspect]
     Indication: GROWTH HORMONE DEFICIENCY
     Dosage: 0.8 MG,  7 INJECTIONS PER WEEK
     Route: 058
     Dates: start: 20060928
  13. DULCOLAX [Concomitant]
     Indication: CONSTIPATION
     Dosage: 7.5 MG, 1X/DAY
     Dates: start: 20091119

REACTIONS (1)
  - GALLBLADDER DISORDER [None]
